FAERS Safety Report 4912613-9 (Version None)
Quarter: 2006Q1

REPORT INFORMATION
  Report Type: 
  Country: None (occurrence: None)
  Receive Date: 20060215
  Receipt Date: 20050609
  Transmission Date: 20060701
  Serious: Yes (Hospitalization, Other)
  Sender: FDA-Public Use
  Company Number: US-MERCK-0506USA01561

PATIENT
  Age: 49 Year
  Sex: Male
  Weight: 82 kg

DRUGS (20)
  1. VIOXX [Suspect]
     Indication: RHEUMATOID ARTHRITIS
     Route: 048
     Dates: start: 20020101
  2. ATENOLOL [Concomitant]
     Indication: HYPERTENSION
     Route: 065
  3. LIPITOR [Concomitant]
     Route: 065
     Dates: start: 20020101
  4. PLAVIX [Concomitant]
     Indication: ANTICOAGULANT THERAPY
     Route: 065
     Dates: start: 20020101
  5. THIAMINE [Concomitant]
     Route: 065
  6. FERROUS GLUCONATE [Concomitant]
     Indication: BLOOD IRON DECREASED
     Route: 065
  7. FOLIC ACID [Concomitant]
     Route: 065
  8. DOCUSATE SODIUM [Concomitant]
     Indication: LAXATIVE SUPPORTIVE CARE
     Route: 065
  9. CELEBREX [Concomitant]
     Indication: RHEUMATOID ARTHRITIS
     Route: 065
     Dates: start: 20020101
  10. [THERAPY UNSPECIFIED] [Concomitant]
     Route: 065
  11. ACETAMINOPHEN [Concomitant]
     Indication: ARTHRALGIA
     Route: 065
  12. HYDROCODONE HYDROCHLORIDE [Concomitant]
     Indication: ARTHRALGIA
     Route: 065
  13. CLINDAMYCIN [Concomitant]
     Indication: ANTIBIOTIC LEVEL THERAPEUTIC
     Route: 065
  14. CEPHALEXIN [Concomitant]
     Indication: DENTAL TREATMENT
     Route: 065
  15. ALBUTEROL [Concomitant]
     Indication: ASTHMA
     Route: 065
  16. ATROVENT [Concomitant]
     Indication: ASTHMA
     Route: 065
  17. NITROQUICK [Concomitant]
     Indication: CHEST PAIN
     Route: 065
  18. DIURETIC (UNSPECIFIED) [Concomitant]
     Indication: HYPERTENSION
     Route: 065
  19. DIURETIC (UNSPECIFIED) [Concomitant]
     Indication: OEDEMA PERIPHERAL
     Route: 065
  20. [THERAPY UNSPECIFIED] [Concomitant]
     Indication: HYPERTENSION
     Route: 065
     Dates: start: 19900101, end: 20050101

REACTIONS (15)
  - ABDOMINAL PAIN [None]
  - ASTHMA [None]
  - BLOOD PRESSURE INCREASED [None]
  - BRAIN STEM INFARCTION [None]
  - CEREBROVASCULAR ACCIDENT [None]
  - CHEST PAIN [None]
  - DIARRHOEA [None]
  - HEADACHE [None]
  - HYPOAESTHESIA [None]
  - HYPOAESTHESIA ORAL [None]
  - NAUSEA [None]
  - NEUROLOGICAL SYMPTOM [None]
  - OESOPHAGEAL DISORDER [None]
  - TRANSIENT ISCHAEMIC ATTACK [None]
  - VOMITING [None]
